FAERS Safety Report 18821345 (Version 1)
Quarter: 2021Q1

REPORT INFORMATION
  Report Type: Spontaneous
  Country: GB (occurrence: GB)
  Receive Date: 20210201
  Receipt Date: 20210201
  Transmission Date: 20210419
  Serious: Yes (Other)
  Sender: FDA-Public Use
  Company Number: GB-TEVA-2021-GB-1872384

PATIENT
  Age: 39 Year
  Sex: Male
  Weight: 101.3 kg

DRUGS (11)
  1. OMEPRAZOLE. [Concomitant]
     Active Substance: OMEPRAZOLE
  2. MYCOPHENOLATE MOFETIL. [Suspect]
     Active Substance: MYCOPHENOLATE MOFETIL
     Route: 065
  3. NINTEDANIB ESILATE [Suspect]
     Active Substance: NINTEDANIB ESYLATE
     Indication: INTERSTITIAL LUNG DISEASE
     Dosage: 300 MILLIGRAM DAILY;
     Route: 048
     Dates: start: 20200812, end: 20201231
  4. SALBUTAMOL [Concomitant]
     Active Substance: ALBUTEROL
  5. AMITRIPTYLINE [Concomitant]
     Active Substance: AMITRIPTYLINE
  6. PREDNISOLONE. [Concomitant]
     Active Substance: PREDNISOLONE
  7. TOSTRAN [Concomitant]
     Active Substance: TESTOSTERONE
  8. IBUPROFEN. [Concomitant]
     Active Substance: IBUPROFEN
  9. OXYCODONE [Concomitant]
     Active Substance: OXYCODONE
  10. PARACETAMOL [Concomitant]
     Active Substance: ACETAMINOPHEN
  11. FOSTAIR [Concomitant]
     Active Substance: BECLOMETHASONE\FORMOTEROL

REACTIONS (1)
  - Liver function test increased [Unknown]

NARRATIVE: CASE EVENT DATE: 20201229
